FAERS Safety Report 9839531 (Version 3)
Quarter: 2014Q2

REPORT INFORMATION
  Report Type: Spontaneous
  Country: US (occurrence: US)
  Receive Date: 20140124
  Receipt Date: 20140519
  Transmission Date: 20141212
  Serious: No
  Sender: FDA-Public Use
  Company Number: US-009507513-1401USA010913

PATIENT
  Age: 60 Year
  Sex: Male
  Weight: 48.98 kg

DRUGS (3)
  1. VICTRELIS [Suspect]
     Indication: HEPATITIS C
     Dosage: 4 DF, TID
     Route: 048
     Dates: start: 20140114
  2. PEGASYS [Suspect]
  3. RIBAPAK [Suspect]

REACTIONS (1)
  - Thrombocytopenia [Recovered/Resolved]
